FAERS Safety Report 15314264 (Version 3)
Quarter: 2018Q3

REPORT INFORMATION
  Report Type: Spontaneous
  Country: US (occurrence: US)
  Receive Date: 20180824
  Receipt Date: 20180914
  Transmission Date: 20181010
  Serious: No
  Sender: FDA-Public Use
  Company Number: US-PFIZER INC-2018340332

PATIENT
  Age: 66 Year
  Sex: Female

DRUGS (6)
  1. XELJANZ [Suspect]
     Active Substance: TOFACITINIB CITRATE
     Indication: OSTEOARTHRITIS
     Dosage: 10 MG, 2X/DAY (5MG 2 TABLETS TWICE A DAY)
     Route: 048
     Dates: end: 20180509
  2. XELJANZ [Suspect]
     Active Substance: TOFACITINIB CITRATE
     Indication: SPINAL COLUMN STENOSIS
     Dosage: 2 DF, DAILY (2 PILLS IN THE MORNING AND 2 PILLS IN THE AFTERNOON)
  3. XELJANZ [Suspect]
     Active Substance: TOFACITINIB CITRATE
     Indication: RHEUMATOID ARTHRITIS
     Dosage: 5 MG, 2X/DAY
     Route: 048
  4. XELJANZ [Suspect]
     Active Substance: TOFACITINIB CITRATE
     Indication: PSORIATIC ARTHROPATHY
     Dosage: 1 DF, 2X/DAY (1 TABLET BY MOUTH TWICE A DAY)
     Route: 048
     Dates: start: 2014
  5. XELJANZ [Suspect]
     Active Substance: TOFACITINIB CITRATE
     Dosage: 20 MG, DAILY (TOOK 2 PILLS IN THE MORNING 2 IN THE AFTERNOON)
  6. METHOTREXATE. [Concomitant]
     Active Substance: METHOTREXATE
     Indication: ARTHRITIS
     Dosage: 0.6 MG, UNK (0.6MG SUBCUTANEOUS INJECTION ONCE A WEEK)
     Route: 058

REACTIONS (4)
  - Product use issue [Unknown]
  - Impaired healing [Unknown]
  - Alopecia [Unknown]
  - Drug ineffective [Unknown]
